FAERS Safety Report 4418052-1 (Version None)
Quarter: 2004Q3

REPORT INFORMATION
  Report Type: 
  Country: None (occurrence: None)
  Receive Date: 20040803
  Receipt Date: 20040719
  Transmission Date: 20050211
  Serious: Yes (Death, Hospitalization)
  Sender: FDA-Public Use
  Company Number: 2004-00034

PATIENT
  Age: 52 Year
  Sex: Male
  Weight: 86.6 kg

DRUGS (2)
  1. VELCADE [Suspect]
     Indication: MULTIPLE MYELOMA
     Dosage: 2.00 MG, INTRAVENOUS
     Route: 042
     Dates: start: 20031102, end: 20040115
  2. VELCADE [Suspect]
     Indication: MULTIPLE MYELOMA
     Dosage: 2.00 MG, INTRAVENOUS
     Route: 042
     Dates: start: 20040126, end: 20040219

REACTIONS (9)
  - BLOOD BILIRUBIN INCREASED [None]
  - BLOOD CREATININE INCREASED [None]
  - BOWEL SOUNDS ABNORMAL [None]
  - COMA [None]
  - HYPOTENSION [None]
  - OCULAR ICTERUS [None]
  - PANCYTOPENIA [None]
  - PSEUDOMONAL SEPSIS [None]
  - VOMITING [None]
